FAERS Safety Report 9221814 (Version 1)
Quarter: 2013Q2

REPORT INFORMATION
  Report Type: Report from Study
  Country: US (occurrence: US)
  Receive Date: 20130410
  Receipt Date: 20130410
  Transmission Date: 20140414
  Serious: Yes (Death, Other)
  Sender: FDA-Public Use
  Company Number: US-JNJFOC-20130401001

PATIENT
  Sex: Female

DRUGS (2)
  1. REMICADE [Suspect]
     Indication: PSORIATIC ARTHROPATHY
     Route: 042
  2. UNKNOWN MEDICATION [Suspect]
     Indication: PAIN
     Route: 065

REACTIONS (3)
  - Death [Fatal]
  - Ulcer [Unknown]
  - Gastrointestinal disorder [Unknown]
